FAERS Safety Report 23452419 (Version 1)
Quarter: 2024Q1

REPORT INFORMATION
  Report Type: Spontaneous
  Country: US (occurrence: None)
  Receive Date: 20240128
  Receipt Date: 20240128
  Transmission Date: 20240409
  Serious: Yes (Other)
  Sender: FDA-Public Use
  Company Number: None

PATIENT
  Age: 47 Year
  Sex: Female

DRUGS (1)
  1. SEMAGLUTIDE [Suspect]
     Active Substance: SEMAGLUTIDE
     Dosage: OTHER FREQUENCY : 1X WEEKLY;?
     Route: 058

REACTIONS (4)
  - Product supply issue [None]
  - Malaise [None]
  - Colitis [None]
  - Manufacturing production issue [None]

NARRATIVE: CASE EVENT DATE: 20240115
